FAERS Safety Report 7052814-X (Version None)
Quarter: 2010Q4

REPORT INFORMATION
  Report Type: 
  Country: None (occurrence: None)
  Receive Date: 20101012
  Receipt Date: 20101001
  Transmission Date: 20110411
  Serious: Yes (Hospitalization)
  Sender: FDA-Public Use
  Company Number: WAES 1006USA02395

PATIENT
  Age: 85 Year
  Sex: Male

DRUGS (8)
  1. ZETIA [Suspect]
     Indication: HYPERCHOLESTEROLAEMIA
     Dosage: 10 MG/DAILY PO
     Route: 048
     Dates: start: 20090330, end: 20090521
  2. MG OXIDE [Concomitant]
  3. DONEPEZIL HYDROCHLORIDE [Concomitant]
  4. ETHYL ICOSAPENTATE [Concomitant]
  5. GLIMEPIRIDE [Concomitant]
  6. PRAVASTATIN SODIUM [Concomitant]
  7. SOLIFENACIN SUCCINATE [Concomitant]
  8. TAMSULOSIN HYDROCHLORIDE [Concomitant]

REACTIONS (1)
  - ATRIOVENTRICULAR BLOCK COMPLETE [None]
